FAERS Safety Report 5493167-8 (Version None)
Quarter: 2007Q4

REPORT INFORMATION
  Report Type: 
  Country: None (occurrence: None)
  Receive Date: 20071022
  Receipt Date: 20071022
  Transmission Date: 20080405
  Serious: Yes (Life-Threatening, Hospitalization)
  Sender: FDA-Public Use
  Company Number: None

PATIENT
  Age: 55 Year
  Sex: Male
  Weight: 86 kg

DRUGS (6)
  1. REYATAZ [Suspect]
     Indication: HIV TEST POSITIVE
     Dosage: 300 MG PO DAILY
     Route: 048
  2. NORVIR [Concomitant]
  3. VIREAD [Concomitant]
  4. VIRAMUNE [Concomitant]
  5. WELLBUTRIN XL [Concomitant]
  6. ZIAGEN [Concomitant]

REACTIONS (2)
  - ATRIOVENTRICULAR BLOCK COMPLETE [None]
  - DYSPNOEA EXERTIONAL [None]
